FAERS Safety Report 9656798 (Version 2)
Quarter: 2013Q4

REPORT INFORMATION
  Report Type: Spontaneous
  Country: US (occurrence: US)
  Receive Date: 20131030
  Receipt Date: 20131204
  Transmission Date: 20140711
  Serious: Yes (Hospitalization, Other)
  Sender: FDA-Public Use
  Company Number: US-009507513-1310USA010163

PATIENT
  Sex: Female
  Weight: 56.69 kg

DRUGS (1)
  1. NUVARING [Suspect]
     Indication: CONTRACEPTION
     Dosage: UNK
     Route: 067
     Dates: start: 2002, end: 20030227

REACTIONS (14)
  - Deep vein thrombosis [Recovered/Resolved with Sequelae]
  - Pulmonary embolism [Unknown]
  - Ovarian cyst [Unknown]
  - Maternal exposure before pregnancy [Unknown]
  - Chest pain [Unknown]
  - Musculoskeletal pain [Unknown]
  - Thrombophlebitis [Unknown]
  - Asthma [Unknown]
  - Arthritis allergic [Unknown]
  - Upper respiratory tract infection [Unknown]
  - Rhinitis allergic [Unknown]
  - Gastrooesophageal reflux disease [Unknown]
  - Preterm premature rupture of membranes [Unknown]
  - Anaemia [Unknown]
